FAERS Safety Report 7442534-1 (Version None)
Quarter: 2011Q2

REPORT INFORMATION
  Report Type: 
  Country: None (occurrence: None)
  Receive Date: 20110425
  Receipt Date: 20110425
  Transmission Date: 20111010
  Serious: Yes (Hospitalization)
  Sender: FDA-Public Use
  Company Number: None

PATIENT
  Age: 58 Year
  Sex: Female
  Weight: 52.25 kg

DRUGS (1)
  1. SUBOXONE [Suspect]

REACTIONS (1)
  - SOMNOLENCE [None]
